FAERS Safety Report 4567992-1 (Version None)
Quarter: 2005Q1

REPORT INFORMATION
  Report Type: 
  Country: None (occurrence: None)
  Receive Date: 20050128
  Receipt Date: 20050112
  Transmission Date: 20050727
  Serious: Yes (Hospitalization)
  Sender: FDA-Public Use
  Company Number: DSA_25642_2005

PATIENT
  Age: 89 Year

DRUGS (5)
  1. MONO-TILDIEM [Suspect]
     Indication: HYPERTENSION
     Dosage: 200 MG Q DAY PO
     Route: 048
     Dates: start: 20030121, end: 20030218
  2. LASILIX [Suspect]
     Indication: CARDIAC FAILURE
     Dosage: 40 MG Q DAY PO
     Route: 048
     Dates: start: 20030121, end: 20030218
  3. AUGMENTIN '125' [Suspect]
     Indication: BRONCHITIS ACUTE
     Dosage: DF PO
     Route: 048
     Dates: start: 20030210, end: 20030218
  4. ROCEPHIN [Suspect]
     Indication: BRONCHITIS
     Dosage: 2 G Q DAY IM
     Route: 030
     Dates: start: 20030210, end: 20030218
  5. SEROPRAM [Suspect]
     Dosage: DF
     Dates: start: 20030121, end: 20030218

REACTIONS (5)
  - GINGIVAL BLEEDING [None]
  - HAEMATOMA [None]
  - MOUTH HAEMORRHAGE [None]
  - MUCOSA VESICLE [None]
  - THROMBOCYTOPENIC PURPURA [None]
